FAERS Safety Report 5284505-X (Version None)
Quarter: 2007Q1

REPORT INFORMATION
  Report Type: 
  Country: None (occurrence: None)
  Receive Date: 20061228
  Receipt Date: 20061019
  Transmission Date: 20070707
  Serious: Yes (Other)
  Sender: FDA-Public Use
  Company Number: 147559USA

PATIENT
  Age: 35 Year
  Sex: Male
  Weight: 58.9676 kg

DRUGS (3)
  1. CLOZAPINE [Suspect]
     Indication: SCHIZOAFFECTIVE DISORDER
     Dosage: SEE IMAGE
     Route: 048
     Dates: start: 19990801, end: 20060823
  2. PEGINTERFERON ALFA-2B [Suspect]
     Indication: HEPATITIS C
     Dosage: 6.8571 MCG (48MCG, 1 IN 1 WK), SUBCUTANEOUS
     Route: 058
  3. RIBAVIRIN [Concomitant]

REACTIONS (4)
  - AGRANULOCYTOSIS [None]
  - CONVULSION [None]
  - NEUTROPENIA [None]
  - PNEUMONIA [None]
